FAERS Safety Report 8113119-9 (Version None)
Quarter: 2012Q1

REPORT INFORMATION
  Report Type: 
  Country: None (occurrence: None)
  Receive Date: 20120131
  Receipt Date: 20120117
  Transmission Date: 20120608
  Serious: Yes (Disabling)
  Sender: FDA-Public Use
  Company Number: 1000027431

PATIENT
  Age: 91 Year
  Sex: Female

DRUGS (6)
  1. MEMANTINE HCL [Suspect]
     Indication: DEMENTIA ALZHEIMER'S TYPE
     Dosage: 5 MG (5 MG, 1 IN 1 D), ORAL
     Route: 048
     Dates: start: 20111102, end: 20111108
  2. SORENTMIN(BROTIZOLAM) [Concomitant]
  3. SEROQUEL 9QUETIAPINE HYDROCHLORIDE) [Concomitant]
  4. MEMANTINE HCL [Suspect]
     Indication: DEMENTIA ALZHEIMER'S TYPE
     Dosage: 15 MG (15 MG, 1 IN 1 D), ORAL
     Route: 048
     Dates: start: 20111116, end: 20111117
  5. SENNOSIDE [Concomitant]
  6. YOKU-KAN-SAN(HERBAL EXTRACT) [Concomitant]

REACTIONS (4)
  - DYSARTHRIA [None]
  - CONDITION AGGRAVATED [None]
  - PORIOMANIA [None]
  - DIZZINESS [None]
